FAERS Safety Report 24908480 (Version 3)
Quarter: 2025Q3

REPORT INFORMATION
  Report Type: Report from Study
  Country: US (occurrence: US)
  Receive Date: 20250131
  Receipt Date: 20250816
  Transmission Date: 20251020
  Serious: No
  Sender: ALEXION PHARMACEUTICALS
  Company Number: US-AstraZeneca-CH-00790735A

PATIENT
  Sex: Female

DRUGS (1)
  1. BENRALIZUMAB [Suspect]
     Active Substance: BENRALIZUMAB
     Route: 065

REACTIONS (6)
  - Asthma [Unknown]
  - Bronchitis [Unknown]
  - Nasal disorder [Unknown]
  - Dysphonia [Unknown]
  - Depression [Unknown]
  - Dyspnoea [Unknown]
